FAERS Safety Report 8814031 (Version 1)
Quarter: 2012Q4

REPORT INFORMATION
  Report Type: Spontaneous
  Country: US (occurrence: None)
  Receive Date: 20120926
  Receipt Date: 20120926
  Transmission Date: 20130627
  Serious: Yes (Hospitalization)
  Sender: FDA-Public Use
  Company Number: None

PATIENT
  Sex: Male
  Weight: 62 kg

DRUGS (10)
  1. CARBOPLATIN [Suspect]
  2. TAXOTERE [Suspect]
  3. CIPROFLAXIN [Concomitant]
  4. FOLIC ACID [Concomitant]
  5. METHOTREXATE [Concomitant]
  6. PERCOCET [Concomitant]
  7. PREDNISONE [Concomitant]
  8. AMBIEN [Concomitant]
  9. ASPIRIN [Concomitant]
  10. VENLAFAXINE [Concomitant]

REACTIONS (7)
  - Abdominal pain upper [None]
  - Dysphagia [None]
  - Nausea [None]
  - Candidiasis [None]
  - Herpes virus infection [None]
  - Mucosal inflammation [None]
  - Neutrophil count decreased [None]
